FAERS Safety Report 5284947-2 (Version None)
Quarter: 2007Q2

REPORT INFORMATION
  Report Type: 
  Country: None (occurrence: None)
  Receive Date: 20070403
  Receipt Date: 20070328
  Transmission Date: 20071010
  Serious: Yes (Death, Other)
  Sender: FDA-Public Use
  Company Number: JP-BRISTOL-MYERS SQUIBB COMPANY-13730395

PATIENT

DRUGS (2)
  1. ETOPOSIDE [Suspect]
     Indication: PROSTATE CANCER
     Route: 048
  2. ESTRAMUSTINE PHOSPHATE SODIUM [Suspect]
     Indication: PROSTATE CANCER
     Route: 048

REACTIONS (6)
  - ANAEMIA [None]
  - DEATH [None]
  - LEUKOPENIA [None]
  - MALIGNANT NEOPLASM PROGRESSION [None]
  - PNEUMONIA [None]
  - THROMBOCYTOPENIA [None]
